FAERS Safety Report 13373749 (Version 2)
Quarter: 2017Q2

REPORT INFORMATION
  Report Type: Report from Study
  Country: IT (occurrence: IT)
  Receive Date: 20170327
  Receipt Date: 20170426
  Transmission Date: 20170830
  Serious: Yes (Other)
  Sender: FDA-Public Use
  Company Number: IT-009507513-1703ITA008999

PATIENT
  Age: 92 Year
  Sex: Female

DRUGS (1)
  1. SINEMET [Suspect]
     Active Substance: CARBIDOPA\LEVODOPA
     Dosage: REPORTED AS 500 MG, DAILY
     Route: 048
     Dates: start: 20161125

REACTIONS (4)
  - Muscle rigidity [Unknown]
  - Tremor [Unknown]
  - Sopor [Unknown]
  - Dyspnoea [Unknown]

NARRATIVE: CASE EVENT DATE: 20161207
